FAERS Safety Report 5727490-6 (Version None)
Quarter: 2008Q2

REPORT INFORMATION
  Report Type: 
  Country: None (occurrence: None)
  Receive Date: 20080505
  Receipt Date: 20080424
  Transmission Date: 20081010
  Serious: Yes (Life-Threatening)
  Sender: FDA-Public Use
  Company Number: JP-ROCHE-553257

PATIENT
  Sex: Male
  Weight: 48 kg

DRUGS (3)
  1. TAMIFLU [Suspect]
     Indication: INFLUENZA
     Route: 048
     Dates: start: 20080306, end: 20080306
  2. TAMIFLU [Suspect]
     Route: 048
     Dates: start: 20080307, end: 20080308
  3. AMLODIN [Concomitant]
     Route: 048
     Dates: start: 19980910

REACTIONS (1)
  - ABNORMAL BEHAVIOUR [None]
